FAERS Safety Report 8136879-X (Version None)
Quarter: 2012Q1

REPORT INFORMATION
  Report Type: 
  Country: None (occurrence: None)
  Receive Date: 20120214
  Receipt Date: 20120207
  Transmission Date: 20120608
  Serious: Yes (Other)
  Sender: FDA-Public Use
  Company Number: GB-B.I. PHARMACEUTICALS,INC./RIDGEFIELD-2012-UK-00153UK

PATIENT

DRUGS (1)
  1. PRADAXA [Suspect]

REACTIONS (1)
  - DEEP VEIN THROMBOSIS [None]
